FAERS Safety Report 9635830 (Version 2)
Quarter: 2013Q4

REPORT INFORMATION
  Report Type: Spontaneous
  Country: US (occurrence: US)
  Receive Date: 20131021
  Receipt Date: 20131021
  Transmission Date: 20140711
  Serious: No
  Sender: FDA-Public Use
  Company Number: US-PURDUE-USA-2013-0103701

PATIENT
  Age: 39 Year
  Sex: Male

DRUGS (5)
  1. BUTRANS [Suspect]
     Indication: BACK PAIN
     Dosage: 20 MCG/HR, WEEKLY
     Route: 062
     Dates: start: 2010
  2. FLEXERIL                           /00428402/ [Concomitant]
     Indication: MUSCLE SPASMS
     Dosage: 10 MG, BID
     Route: 048
  3. OXYCODONE / ACETAMINOPHEN [Concomitant]
     Indication: BACK PAIN
     Dosage: 10/325 MG, TID
     Route: 048
  4. CYMBALTA [Concomitant]
     Indication: PAIN
     Dosage: 20 MG, DAILY
     Route: 048
  5. CYMBALTA [Concomitant]
     Indication: DEPRESSION

REACTIONS (4)
  - Drug withdrawal syndrome [Not Recovered/Not Resolved]
  - Pain [Not Recovered/Not Resolved]
  - Feeling abnormal [Not Recovered/Not Resolved]
  - Asthenia [Not Recovered/Not Resolved]
